FAERS Safety Report 12862949 (Version 1)
Quarter: 2016Q4

REPORT INFORMATION
  Report Type: Spontaneous
  Country: US (occurrence: US)
  Receive Date: 20161019
  Receipt Date: 20161019
  Transmission Date: 20170207
  Serious: Yes (Hospitalization, Other)
  Sender: FDA-Public Use
  Company Number: US-SA-2016SA188314

PATIENT
  Age: 41 Year
  Sex: Male

DRUGS (4)
  1. LOVENOX [Suspect]
     Active Substance: ENOXAPARIN SODIUM
     Indication: THROMBOSIS PROPHYLAXIS
     Route: 058
     Dates: start: 20140930
  2. LOVENOX [Suspect]
     Active Substance: ENOXAPARIN SODIUM
     Indication: PULMONARY EMBOLISM
     Route: 058
     Dates: start: 20141029
  3. LOVENOX [Suspect]
     Active Substance: ENOXAPARIN SODIUM
     Indication: PULMONARY EMBOLISM
     Route: 058
     Dates: start: 20140930
  4. LOVENOX [Suspect]
     Active Substance: ENOXAPARIN SODIUM
     Indication: THROMBOSIS PROPHYLAXIS
     Route: 058
     Dates: start: 20141029

REACTIONS (26)
  - Transaminases increased [Unknown]
  - Functional gastrointestinal disorder [Unknown]
  - Herpes zoster [Unknown]
  - Liver injury [Unknown]
  - Nasal mucosal disorder [Unknown]
  - Rib fracture [Unknown]
  - Hypoaesthesia [Unknown]
  - Pulmonary embolism [Unknown]
  - Thrombocytopenia [Unknown]
  - Headache [Recovered/Resolved]
  - Pulmonary oedema [Unknown]
  - Tooth infection [Unknown]
  - Purulent discharge [Unknown]
  - Tongue discomfort [Unknown]
  - Steatohepatitis [Unknown]
  - Splenomegaly [Unknown]
  - Dysuria [Unknown]
  - Diarrhoea [Recovering/Resolving]
  - Diarrhoea [Unknown]
  - Hepatic cirrhosis [Unknown]
  - Ascites [Unknown]
  - Sinusitis [Unknown]
  - Cough [Recovering/Resolving]
  - Pain [Unknown]
  - Hepatic steatosis [Unknown]
  - Mucosal inflammation [Unknown]

NARRATIVE: CASE EVENT DATE: 20141008
